FAERS Safety Report 4856050-4 (Version None)
Quarter: 2005Q4

REPORT INFORMATION
  Report Type: 
  Country: None (occurrence: None)
  Receive Date: 20051216
  Receipt Date: 20050801
  Transmission Date: 20060501
  Serious: Yes (Death)
  Sender: FDA-Public Use
  Company Number: 200512246JP

PATIENT
  Age: 54 Year
  Sex: Female

DRUGS (11)
  1. ARAVA [Suspect]
     Indication: RHEUMATOID ARTHRITIS
     Route: 048
     Dates: start: 20040609, end: 20040611
  2. ARAVA [Suspect]
     Route: 048
     Dates: start: 20040612, end: 20040617
  3. LASIX [Suspect]
  4. OMEPRAL [Concomitant]
     Indication: GASTRIC ULCER
     Route: 048
     Dates: end: 20040617
  5. ASPARA K [Concomitant]
     Indication: HYPOKALAEMIA
     Route: 048
     Dates: end: 20040617
  6. ALDACTONE [Concomitant]
     Indication: HYPOKALAEMIA
     Route: 048
     Dates: end: 20040617
  7. FELDENE [Concomitant]
     Indication: RHEUMATOID ARTHRITIS
     Route: 054
     Dates: end: 20040617
  8. PREDONINE [Concomitant]
     Indication: RHEUMATOID ARTHRITIS
     Route: 048
     Dates: end: 20040617
  9. AMLODIPINE BESYLATE [Concomitant]
     Indication: HYPERTENSION
     Route: 048
     Dates: end: 20040617
  10. SELOKEN [Concomitant]
     Indication: HYPERTENSION
     Route: 048
     Dates: end: 20040617
  11. SALIGREN [Concomitant]
     Indication: SJOGREN'S SYNDROME
     Route: 048
     Dates: end: 20040617

REACTIONS (3)
  - ATRIOVENTRICULAR BLOCK [None]
  - CARDIAC ARREST [None]
  - HYPOKALAEMIA [None]
